FAERS Safety Report 9949049 (Version 1)
Quarter: 2014Q1

REPORT INFORMATION
  Report Type: Report from Study
  Country: DE (occurrence: DE)
  Receive Date: 20140304
  Receipt Date: 20140304
  Transmission Date: 20141002
  Serious: Yes (Hospitalization)
  Sender: FDA-Public Use
  Company Number: DE-ROCHE-1088959

PATIENT
  Age: 64 Year
  Sex: Male
  Weight: 100 kg

DRUGS (4)
  1. RITUXIMAB [Suspect]
     Indication: RHEUMATOID ARTHRITIS
     Route: 042
     Dates: start: 20110126
  2. RITUXIMAB [Suspect]
     Route: 042
     Dates: start: 20110209
  3. RITUXIMAB [Suspect]
     Route: 042
     Dates: start: 20110721
  4. RITUXIMAB [Suspect]
     Route: 042
     Dates: start: 20110804

REACTIONS (1)
  - Transitional cell carcinoma [Recovered/Resolved]
